FAERS Safety Report 8452500-5 (Version None)
Quarter: 2012Q2

REPORT INFORMATION
  Report Type: 
  Country: None (occurrence: None)
  Receive Date: 20120620
  Receipt Date: 20120615
  Transmission Date: 20120825
  Serious: Yes (Hospitalization, Other)
  Sender: FDA-Public Use
  Company Number: PHHY2009MX18327

PATIENT
  Age: 76 Year
  Sex: Female

DRUGS (10)
  1. CONDROSULF [Concomitant]
     Dosage: ONCE A DAY
  2. ANTISTAX [Concomitant]
     Dosage: UNK UKN, UNK
  3. CLONAZEPAM [Concomitant]
     Dosage: UNK UKN, UNK
  4. DICLOFENAC SODIUM [Concomitant]
     Dosage: UNK UKN, UNK
  5. ASPIRIN [Concomitant]
     Dosage: ONCE A DAY
  6. TAPAZOL [Concomitant]
     Dosage: UNK UKN, UNK
  7. COBAMAMIDE [Concomitant]
     Dosage: ONCE A DAY
  8. THIOCOLCHICOSIDE [Concomitant]
     Dosage: ONCE A DAY
  9. ZOLEDRONOC ACID [Suspect]
     Indication: OSTEOPOROSIS
     Dosage: 5 MG/100 ML, ONCE A YEAR
     Route: 042
     Dates: start: 20080501
  10. SODIUM PICOSULFATE [Concomitant]
     Dosage: UNK UKN, UNK

REACTIONS (7)
  - PAIN IN EXTREMITY [None]
  - ABASIA [None]
  - THROMBOSIS [None]
  - CONSTIPATION [None]
  - URINARY TRACT INFECTION [None]
  - RENAL FAILURE ACUTE [None]
  - HAEMORRHOIDAL HAEMORRHAGE [None]
